FAERS Safety Report 13860170 (Version 1)
Quarter: 2017Q3

REPORT INFORMATION
  Report Type: Spontaneous
  Country: US (occurrence: US)
  Receive Date: 20170811
  Receipt Date: 20170811
  Transmission Date: 20171127
  Serious: No
  Sender: FDA-Public Use
  Company Number: US-EAGLE PHARMACEUTICALS, INC.-US-2017EAG000052

PATIENT
  Age: 6 Year
  Sex: Male

DRUGS (3)
  1. RYANODEX [Suspect]
     Active Substance: DANTROLENE SODIUM
     Dosage: 1 MG/KG, UNK
     Route: 042
     Dates: start: 20170524
  2. RYANODEX [Suspect]
     Active Substance: DANTROLENE SODIUM
     Dosage: 2 MG/KG, UNK
     Route: 042
  3. RYANODEX [Suspect]
     Active Substance: DANTROLENE SODIUM
     Indication: HYPERTHERMIA MALIGNANT
     Dosage: 2.5 MG/KG, SINGLE
     Route: 042
     Dates: start: 20170523, end: 20170523

REACTIONS (1)
  - Inappropriate schedule of drug administration [Not Recovered/Not Resolved]

NARRATIVE: CASE EVENT DATE: 20170523
